FAERS Safety Report 6968675-0 (Version None)
Quarter: 2010Q3

REPORT INFORMATION
  Report Type: 
  Country: None (occurrence: None)
  Receive Date: 20100907
  Receipt Date: 20100831
  Transmission Date: 20110219
  Serious: Yes (Other)
  Sender: FDA-Public Use
  Company Number: DE-AMGEN-KDL428947

PATIENT
  Sex: Female

DRUGS (1)
  1. NPLATE [Suspect]
     Indication: PRODUCT USED FOR UNKNOWN INDICATION

REACTIONS (6)
  - DERMATITIS ALLERGIC [None]
  - EYELID OEDEMA [None]
  - HYPERSENSITIVITY [None]
  - RASH GENERALISED [None]
  - RASH PUSTULAR [None]
  - SWOLLEN TONGUE [None]
